FAERS Safety Report 24460061 (Version 1)
Quarter: 2024Q4

REPORT INFORMATION
  Report Type: Report from Study
  Country: US (occurrence: US)
  Receive Date: 20241018
  Receipt Date: 20241018
  Transmission Date: 20250115
  Serious: No
  Sender: ROCHE
  Company Number: US-ROCHE-3544425

PATIENT
  Age: 29 Year
  Sex: Male
  Weight: 97.07 kg

DRUGS (9)
  1. RITUXAN [Suspect]
     Active Substance: RITUXIMAB
     Indication: Myopathy
     Dosage: 1000 MG OF RITUXAN ON DAY 1 AND 15. QUANTITY- 4,  500 MG VIALS
     Route: 042
  2. PRIVIGEN [Concomitant]
     Active Substance: HUMAN IMMUNOGLOBULIN G
     Indication: Immunodeficiency
     Dosage: 2 G/KG (1G/KG ON DAY 1 AND 1G/KG ON NEXT DAY) EVERY MONTH
     Route: 042
     Dates: start: 20240404
  3. DIPHENHYDRAMINE HYDROCHLORIDE [Concomitant]
     Active Substance: DIPHENHYDRAMINE HYDROCHLORIDE
     Indication: Myopathy
     Route: 048
     Dates: start: 20240404
  4. SODIUM CHLORIDE [Concomitant]
     Active Substance: SODIUM CHLORIDE
     Indication: Myopathy
     Dosage: 250CC IV WITH INFUSION
     Route: 042
     Dates: start: 20240404
  5. SOLU-MEDROL [Concomitant]
     Active Substance: METHYLPREDNISOLONE SODIUM SUCCINATE
     Indication: Myopathy
     Route: 042
  6. SODIUM CHLORIDE [Concomitant]
     Active Substance: SODIUM CHLORIDE
     Route: 042
     Dates: start: 20240404
  7. ONDANSETRON [Concomitant]
     Active Substance: ONDANSETRON
     Dosage: PLACE 2 TABLET BY TRANSLINGUAL ROUTE 2 TIMES EVERY DAY ON TOP OF THE TONGUE WHERE THEY WILL DISSOLVE
     Dates: start: 20240220
  8. PRIVIGEN [Concomitant]
     Active Substance: HUMAN IMMUNOGLOBULIN G
     Dates: start: 20240313
  9. TYLENOL [Concomitant]
     Active Substance: ACETAMINOPHEN
     Route: 048
     Dates: start: 20240314

REACTIONS (2)
  - Off label use [Unknown]
  - No adverse event [Unknown]
